FAERS Safety Report 15612685 (Version 1)
Quarter: 2018Q4

REPORT INFORMATION
  Report Type: Spontaneous
  Country: US (occurrence: US)
  Receive Date: 20181113
  Receipt Date: 20181113
  Transmission Date: 20190205
  Serious: Yes (Death, Other)
  Sender: FDA-Public Use
  Company Number: US-INCYTE CORPORATION-2018IN011542

PATIENT

DRUGS (1)
  1. JAKAFI [Suspect]
     Active Substance: RUXOLITINIB
     Indication: POLYCYTHAEMIA VERA
     Dosage: 10 MG, BID
     Route: 048
     Dates: start: 20161027

REACTIONS (5)
  - Polycythaemia vera [Fatal]
  - Gastric ulcer haemorrhage [Fatal]
  - Oesophageal ulcer haemorrhage [Fatal]
  - Decreased appetite [Unknown]
  - Multiple drug therapy [Unknown]
